FAERS Safety Report 19565490 (Version 1)
Quarter: 2021Q3

REPORT INFORMATION
  Report Type: Spontaneous
  Country: US (occurrence: US)
  Receive Date: 20210715
  Receipt Date: 20210715
  Transmission Date: 20211014
  Serious: Yes (Other)
  Sender: FDA-Public Use
  Company Number: US-SA-2021SA227070

PATIENT
  Age: 72 Year
  Sex: Female

DRUGS (1)
  1. LOVENOX [Suspect]
     Active Substance: ENOXAPARIN SODIUM
     Indication: THROMBOSIS
     Dosage: DRUG STRUCTURE DOSAGE : 80MG DRUG INTERVAL DOSAGE : TWICE A DAY DRUG TREATMENT DURATION: NA
     Dates: end: 20210331

REACTIONS (1)
  - Haemorrhage [Unknown]
